FAERS Safety Report 14311315 (Version 1)
Quarter: 2017Q4

REPORT INFORMATION
  Report Type: Spontaneous
  Country: US (occurrence: US)
  Receive Date: 20171221
  Receipt Date: 20171221
  Transmission Date: 20180321
  Serious: No
  Sender: FDA-Public Use
  Company Number: US-NOVEN PHARMACEUTICALS, INC.-US2017000700

PATIENT

DRUGS (3)
  1. MINIVELLE [Suspect]
     Active Substance: ESTRADIOL
     Indication: OSTEOPOROSIS
     Dosage: 0.0375 MG, UNKNOWN
     Route: 062
     Dates: start: 2017, end: 201705
  2. BENADRYL [Concomitant]
     Active Substance: DIPHENHYDRAMINE HYDROCHLORIDE
     Indication: FOOD ALLERGY
  3. MINIVELLE [Suspect]
     Active Substance: ESTRADIOL
     Dosage: 0.025 MG, UNKNOWN
     Route: 062
     Dates: start: 201705, end: 201705

REACTIONS (3)
  - Drug dose omission [Recovered/Resolved]
  - Paraesthesia [Not Recovered/Not Resolved]
  - Abdominal pain upper [Recovered/Resolved]

NARRATIVE: CASE EVENT DATE: 2017
